FAERS Safety Report 7531878-0 (Version None)
Quarter: 2011Q2

REPORT INFORMATION
  Report Type: 
  Country: None (occurrence: None)
  Receive Date: 20110607
  Receipt Date: 20110607
  Transmission Date: 20111010
  Serious: Yes (Hospitalization)
  Sender: FDA-Public Use
  Company Number: None

PATIENT
  Age: 45 Year
  Sex: Male
  Weight: 102 kg

DRUGS (1)
  1. METRONIDAZOLE [Suspect]
     Dosage: 500 MG ONCE IV
     Route: 042
     Dates: start: 20110506, end: 20110506

REACTIONS (2)
  - DRUG HYPERSENSITIVITY [None]
  - ANAPHYLACTIC REACTION [None]
